FAERS Safety Report 21825950 (Version 1)
Quarter: 2023Q1

REPORT INFORMATION
  Report Type: Report from Study
  Country: US (occurrence: US)
  Receive Date: 20230106
  Receipt Date: 20230106
  Transmission Date: 20230418
  Serious: No
  Sender: FDA-Public Use
  Company Number: US-ABBVIE-4259205

PATIENT
  Sex: Male

DRUGS (2)
  1. VENCLEXTA [Suspect]
     Active Substance: VENETOCLAX
     Indication: Leukaemia monocytic
     Dosage: DAY 1
     Route: 048
  2. VENCLEXTA [Suspect]
     Active Substance: VENETOCLAX
     Indication: Leukaemia monocytic
     Dosage: 2 TABLETS (200MG) BY MOUTH ON DAYS 2-21 OF EVERY 28 DAY CYCLE.
     Route: 048

REACTIONS (1)
  - Off label use [Unknown]
